FAERS Safety Report 18516676 (Version 1)
Quarter: 2020Q4

REPORT INFORMATION
  Report Type: Report from Study
  Country: None (occurrence: US)
  Receive Date: 20201118
  Receipt Date: 20201118
  Transmission Date: 20210114
  Serious: Yes (Hospitalization)
  Sender: FDA-Public Use
  Company Number: US-ABBVIE-20K-163-3651483-00

PATIENT
  Age: 66 Year
  Sex: Male

DRUGS (1)
  1. VENCLEXTA [Suspect]
     Active Substance: VENETOCLAX
     Indication: THROMBOCYTOPENIA
     Route: 048
     Dates: start: 20201030

REACTIONS (2)
  - Central venous catheterisation [Not Recovered/Not Resolved]
  - Post procedural fever [Not Recovered/Not Resolved]

NARRATIVE: CASE EVENT DATE: 20201111
